FAERS Safety Report 9553749 (Version 1)
Quarter: 2013Q3

REPORT INFORMATION
  Report Type: Spontaneous
  Country: US (occurrence: None)
  Receive Date: 20130924
  Receipt Date: 20130924
  Transmission Date: 20140515
  Serious: Yes (Hospitalization, Other)
  Sender: FDA-Public Use
  Company Number: None

PATIENT
  Age: 14 Year
  Sex: Female
  Weight: 68.49 kg

DRUGS (1)
  1. EFFEXOR [Suspect]
     Route: 048

REACTIONS (4)
  - Headache [None]
  - Fatigue [None]
  - Suicidal ideation [None]
  - Paraesthesia [None]
